FAERS Safety Report 11364548 (Version 1)
Quarter: 2015Q3

REPORT INFORMATION
  Report Type: Spontaneous
  Country: US (occurrence: None)
  Receive Date: 20150810
  Receipt Date: 20150810
  Transmission Date: 20151125
  Serious: Yes (Life-Threatening, Other)
  Sender: FDA-Public Use
  Company Number: None

PATIENT
  Age: 53 Year
  Sex: Male
  Weight: 154.22 kg

DRUGS (11)
  1. LYRICA [Suspect]
     Active Substance: PREGABALIN
     Indication: NEUROPATHY PERIPHERAL
     Dosage: 1PILL TWICE DAILY
     Dates: start: 20150721, end: 20150730
  2. BISOPRL/HCTZ [Concomitant]
  3. LISINOPRIL. [Concomitant]
     Active Substance: LISINOPRIL
  4. RAM [Concomitant]
  5. GGABAPENTIN [Concomitant]
  6. CATALOG [Concomitant]
  7. GLIPIZIDE. [Concomitant]
     Active Substance: GLIPIZIDE
  8. C-PAP MACHINE [Concomitant]
     Active Substance: DEVICE
  9. TIZANIDINE. [Concomitant]
     Active Substance: TIZANIDINE
  10. METFORMIN [Concomitant]
     Active Substance: METFORMIN HYDROCHLORIDE
  11. SIMVASTATIN. [Concomitant]
     Active Substance: SIMVASTATIN

REACTIONS (12)
  - Headache [None]
  - Joint swelling [None]
  - Nasal congestion [None]
  - Aggression [None]
  - Pyrexia [None]
  - Arthralgia [None]
  - Tremor [None]
  - Confusional state [None]
  - Anger [None]
  - Swelling face [None]
  - Retching [None]
  - Anxiety [None]

NARRATIVE: CASE EVENT DATE: 20150715
